FAERS Safety Report 5594748-3 (Version None)
Quarter: 2007Q4

REPORT INFORMATION
  Report Type: 
  Country: None (occurrence: None)
  Receive Date: 20071218
  Receipt Date: 20070320
  Transmission Date: 20080405
  Serious: Yes (Hospitalization, Other)
  Sender: FDA-Public Use
  Company Number: 2007022954

PATIENT
  Age: 46 Year
  Sex: Female
  Weight: 93.4 kg

DRUGS (1)
  1. BEXTRA [Suspect]
     Indication: PAIN
     Dosage: 1 IN 1 D
     Dates: start: 20021101

REACTIONS (3)
  - ANXIETY [None]
  - CARDIAC FAILURE CONGESTIVE [None]
  - DEPRESSION [None]
